FAERS Safety Report 18508793 (Version 2)
Quarter: 2020Q4

REPORT INFORMATION
  Report Type: Spontaneous
  Country: US (occurrence: US)
  Receive Date: 20201117
  Receipt Date: 20201210
  Transmission Date: 20210114
  Serious: No
  Sender: FDA-Public Use
  Company Number: US-ASTRAZENECA-2020SF50886

PATIENT
  Age: 797 Month
  Sex: Female
  Weight: 145.2 kg

DRUGS (5)
  1. BYDUREON BCISE [Suspect]
     Active Substance: EXENATIDE
     Indication: DIABETES MELLITUS
     Route: 058
     Dates: start: 201903
  2. ESCITALOPRAM [Concomitant]
     Active Substance: ESCITALOPRAM OXALATE
     Indication: ANXIETY
     Dosage: START DATE IS PROBABLY ABOUT 4 MONTHS AGO OR MAYBE LONGER.
     Route: 048
  3. MAGNESIUM [Concomitant]
     Active Substance: MAGNESIUM
     Dosage: 1 TAB EVERY NIGHT AT BEDTIME, START ABOUT CLOSE TO YEAR AGO.
     Route: 048
  4. HYDROXINE [Concomitant]
     Active Substance: HYDROXYZINE HYDROCHLORIDE
     Indication: ANXIETY
     Dosage: 1 TO 2 TAB ORAL AS NEEDED,START DATE PROBABLY ABOUT 4 MONTHS AGO OR MAYBE LONGER
     Route: 048
  5. ROPINIROLE. [Concomitant]
     Active Substance: ROPINIROLE
     Indication: RESTLESS LEGS SYNDROME
     Dosage: 1 TABLET ORAL 1 TO 3 HOURS BEFORE BED, START DATE IS 4 MONTHS AGO OR MAYBE LONGER
     Route: 048

REACTIONS (5)
  - Injection site mass [Unknown]
  - Intentional device misuse [Unknown]
  - Device leakage [Unknown]
  - Incorrect dose administered by device [Unknown]
  - Wrong technique in device usage process [Unknown]

NARRATIVE: CASE EVENT DATE: 201903
